FAERS Safety Report 8164185-6 (Version None)
Quarter: 2012Q1

REPORT INFORMATION
  Report Type: 
  Country: None (occurrence: None)
  Receive Date: 20120221
  Receipt Date: 20120217
  Transmission Date: 20120608
  Serious: Yes (Death, Life-Threatening, Hospitalization, Other)
  Sender: FDA-Public Use
  Company Number: 2008SP003604

PATIENT
  Age: 38 Year
  Sex: Male
  Weight: 54 kg

DRUGS (7)
  1. TEMODAL [Suspect]
     Indication: GLIOBLASTOMA MULTIFORME
     Dosage: 150 MG/M2; QD; PO, 150 MG/M2; QD; PO, 150 MG/M2; QD; PO
     Route: 048
     Dates: start: 20061018, end: 20061022
  2. TEMODAL [Suspect]
     Indication: GLIOBLASTOMA MULTIFORME
     Dosage: 150 MG/M2; QD; PO, 150 MG/M2; QD; PO, 150 MG/M2; QD; PO
     Route: 048
     Dates: start: 20061201
  3. TEMODAL [Suspect]
     Indication: GLIOBLASTOMA MULTIFORME
     Dosage: 150 MG/M2; QD; PO, 150 MG/M2; QD; PO, 150 MG/M2; QD; PO
     Route: 048
     Dates: start: 20061129, end: 20061203
  4. RAMELTEON [Concomitant]
  5. WAKOBITAL [Concomitant]
  6. BETAMETHASONE [Concomitant]
  7. GLYCEOL [Concomitant]

REACTIONS (8)
  - NAUSEA [None]
  - GENERAL PHYSICAL CONDITION ABNORMAL [None]
  - NEOPLASM PROGRESSION [None]
  - VOMITING [None]
  - HEPATIC FUNCTION ABNORMAL [None]
  - HERPES VIRUS INFECTION [None]
  - APHAGIA [None]
  - BRAIN NEOPLASM [None]
